FAERS Safety Report 20698505 (Version 2)
Quarter: 2022Q2

REPORT INFORMATION
  Report Type: Report from Study
  Country: CA (occurrence: CA)
  Receive Date: 20220412
  Receipt Date: 20220414
  Transmission Date: 20220721
  Serious: Yes (Other)
  Sender: FDA-Public Use
  Company Number: CA-ABBVIE-22K-028-4348682-00

PATIENT
  Sex: Female

DRUGS (1)
  1. RINVOQ [Suspect]
     Active Substance: UPADACITINIB
     Indication: Rheumatoid arthritis
     Route: 048
     Dates: start: 20210310

REACTIONS (5)
  - Osteonecrosis [Unknown]
  - COVID-19 [Unknown]
  - Pain in extremity [Unknown]
  - Arthropathy [Unknown]
  - Joint injury [Unknown]
